FAERS Safety Report 7945835-3 (Version None)
Quarter: 2011Q4

REPORT INFORMATION
  Report Type: 
  Country: None (occurrence: None)
  Receive Date: 20111129
  Receipt Date: 20111116
  Transmission Date: 20120403
  Serious: Yes (Hospitalization)
  Sender: FDA-Public Use
  Company Number: PHHY2011BR101351

PATIENT
  Sex: Female

DRUGS (6)
  1. SPIRIVA [Concomitant]
     Indication: DYSPNOEA
     Dosage: UNK UKN, QD2SDO
  2. XALATAN [Concomitant]
     Dosage: UNK
  3. DILTIAZEM HCL [Concomitant]
     Indication: HYPERTENSION
     Dosage: 3 DF, UNK
  4. OMIMAX [Concomitant]
     Indication: DYSPNOEA
     Dosage: 400 UG, ONCE A NIGHT
  5. OXYGEN [Concomitant]
  6. FORMOTEROL FUMARATE [Suspect]
     Indication: DYSPNOEA
     Dosage: 400 UG, QD

REACTIONS (3)
  - APNOEA [None]
  - TACHYCARDIA [None]
  - DYSPNOEA [None]
